FAERS Safety Report 7879926-2 (Version None)
Quarter: 2011Q4

REPORT INFORMATION
  Report Type: 
  Country: None (occurrence: None)
  Receive Date: 20111101
  Receipt Date: 20111028
  Transmission Date: 20120403
  Serious: Yes (Hospitalization, Other)
  Sender: FDA-Public Use
  Company Number: US-PFIZER INC-2011257346

PATIENT
  Sex: Female
  Weight: 68.027 kg

DRUGS (4)
  1. PERCOCET [Concomitant]
     Indication: PAIN
     Dosage: UNK
  2. CHANTIX [Suspect]
     Indication: SMOKING CESSATION THERAPY
     Dosage: UNK
     Dates: start: 20080101, end: 20080101
  3. CHANTIX [Suspect]
     Dosage: UNK
  4. LISINOPRIL [Concomitant]
     Indication: BLOOD PRESSURE ABNORMAL
     Dosage: 12.5 MG, DAILY

REACTIONS (5)
  - BIPOLAR I DISORDER [None]
  - ROAD TRAFFIC ACCIDENT [None]
  - BRONCHITIS [None]
  - EMPHYSEMA [None]
  - DEPRESSION [None]
